FAERS Safety Report 15190247 (Version 3)
Quarter: 2018Q3

REPORT INFORMATION
  Report Type: Spontaneous
  Country: US (occurrence: US)
  Receive Date: 20180724
  Receipt Date: 20180918
  Transmission Date: 20181010
  Serious: No
  Sender: FDA-Public Use
  Company Number: US-BAYER-2018-138876

PATIENT
  Sex: Female

DRUGS (1)
  1. MIRENA [Suspect]
     Active Substance: LEVONORGESTREL
     Indication: MENSTRUAL DISORDER
     Dosage: 20 MCG/24HR, CONT
     Route: 015
     Dates: start: 201709, end: 2018

REACTIONS (7)
  - Off label use [None]
  - Device use issue [None]
  - Discomfort [None]
  - Abdominal pain lower [Recovered/Resolved]
  - Procedural pain [None]
  - Alopecia [Not Recovered/Not Resolved]
  - Iron overload [None]

NARRATIVE: CASE EVENT DATE: 201709
